FAERS Safety Report 5725350-8 (Version None)
Quarter: 2008Q2

REPORT INFORMATION
  Report Type: 
  Country: None (occurrence: None)
  Receive Date: 20080501
  Receipt Date: 20080419
  Transmission Date: 20081010
  Serious: Yes (Other)
  Sender: FDA-Public Use
  Company Number: US-PFIZER INC-2008034980

PATIENT
  Sex: Female
  Weight: 58.181 kg

DRUGS (2)
  1. XALATAN [Suspect]
     Indication: GLAUCOMA
     Dates: start: 20070101, end: 20070101
  2. XALATAN [Suspect]
     Indication: CATARACT

REACTIONS (7)
  - CHEST DISCOMFORT [None]
  - DYSPNOEA [None]
  - HYPERSENSITIVITY [None]
  - HYPERTENSION [None]
  - MALAISE [None]
  - SWELLING FACE [None]
  - THYROID DISORDER [None]
